FAERS Safety Report 8600884-7 (Version None)
Quarter: 2012Q3

REPORT INFORMATION
  Report Type: 
  Country: None (occurrence: None)
  Receive Date: 20120817
  Receipt Date: 20120814
  Transmission Date: 20120928
  Serious: Yes (Death, Hospitalization, Other)
  Sender: FDA-Public Use
  Company Number: US-BAYER-2012-081555

PATIENT
  Age: 53 Year
  Sex: Male

DRUGS (10)
  1. ROXICODONE [Concomitant]
     Dosage: 10 MG EVERY 8 HOURS, PRN
     Dates: start: 20120717
  2. COMPAZINE [Concomitant]
     Indication: VOMITING
  3. FERROUS FUMARATE [Concomitant]
     Dosage: 325 MG, QD
     Route: 048
     Dates: start: 20110427
  4. MS CONTIN [Concomitant]
     Dosage: 30 MG, TID
     Route: 048
     Dates: start: 20120717
  5. PHENERGAN HCL [Concomitant]
     Indication: NAUSEA
     Dosage: 25 MG EVERY 6 HOURS, PRN
     Route: 048
     Dates: start: 20120717
  6. PRINZIDE [Concomitant]
     Dosage: 20-12.5 MG, QD
     Route: 048
  7. NEXAVAR [Suspect]
     Indication: COLORECTAL CANCER METASTATIC
     Dosage: 400 MG AM, 200 MG PM X 21DAYS
     Dates: start: 20120622, end: 20120807
  8. XELODA [Suspect]
     Indication: COLORECTAL CANCER METASTATIC
     Dosage: 1500 MG AM, 1650 MG PM X 14 DAYS
     Dates: start: 20120622, end: 20120801
  9. MULTI-VITAMIN [Concomitant]
     Dosage: UNK UNK, QD
     Route: 048
     Dates: start: 20110427
  10. COMPAZINE [Concomitant]
     Indication: NAUSEA
     Dosage: 10 MG EVERY 6 HOURS, PRN
     Route: 048
     Dates: start: 20120321

REACTIONS (13)
  - HYPOKALAEMIA [None]
  - PAIN [None]
  - FATIGUE [None]
  - ASTHENIA [None]
  - DYSPHAGIA [None]
  - DEEP VEIN THROMBOSIS [None]
  - FAILURE TO THRIVE [None]
  - DECREASED APPETITE [None]
  - FLUID INTAKE REDUCED [None]
  - DEATH [None]
  - ANAEMIA [None]
  - CONFUSIONAL STATE [None]
  - AGITATION [None]
